FAERS Safety Report 5897278-4 (Version None)
Quarter: 2008Q3

REPORT INFORMATION
  Report Type: 
  Country: None (occurrence: None)
  Receive Date: 20080924
  Receipt Date: 20080924
  Transmission Date: 20090109
  Serious: No
  Sender: FDA-Public Use
  Company Number: None

PATIENT
  Age: 34 Year
  Sex: Female
  Weight: 50.44 kg

DRUGS (2)
  1. ESTRADIOL [Suspect]
     Indication: MENOPAUSAL SYMPTOMS
     Dosage: 0.025 TOPICALLY
     Route: 061
     Dates: start: 20080903
  2. ESTRADIOL [Suspect]
     Indication: MENOPAUSAL SYMPTOMS
     Dosage: 0.025 TOPICALLY
     Route: 061
     Dates: start: 20080910

REACTIONS (2)
  - DERMATITIS CONTACT [None]
  - PHARMACEUTICAL PRODUCT COMPLAINT [None]
